FAERS Safety Report 15155819 (Version 1)
Quarter: 2018Q3

REPORT INFORMATION
  Report Type: Spontaneous
  Country: DE (occurrence: DE)
  Receive Date: 20180717
  Receipt Date: 20180717
  Transmission Date: 20181010
  Serious: Yes (Other)
  Sender: FDA-Public Use
  Company Number: DE-US WORLDMEDS, LLC-STA_00018072

PATIENT
  Age: 51 Year
  Sex: Female
  Weight: 91 kg

DRUGS (12)
  1. VELMETIA 50/1000 [Concomitant]
     Indication: PRODUCT USED FOR UNKNOWN INDICATION
     Route: 048
  2. MYDOCALM [Concomitant]
     Indication: PRODUCT USED FOR UNKNOWN INDICATION
     Route: 048
  3. MADOPAR 125 [Concomitant]
     Indication: PARKINSON^S DISEASE
     Dosage: 1X0.5 + 6X1 TBL/D
     Route: 048
  4. NACOM 200 RET [Concomitant]
     Indication: PARKINSON^S DISEASE
     Route: 048
  5. APOMORPHINE HYDROCHLORIDE [Suspect]
     Active Substance: APOMORPHINE HYDROCHLORIDE
     Indication: PARKINSON^S DISEASE
     Dosage: OVER 24 HOURS
     Route: 058
     Dates: start: 201012
  6. REQUIP MODU TAB. 8MG [Concomitant]
     Indication: PARKINSON^S DISEASE
     Route: 048
  7. CIPRAMIL 20MG [Concomitant]
     Active Substance: CITALOPRAM HYDROBROMIDE
     Indication: PRODUCT USED FOR UNKNOWN INDICATION
     Route: 048
  8. RIVOTRIL [Concomitant]
     Active Substance: CLONAZEPAM
     Indication: PRODUCT USED FOR UNKNOWN INDICATION
     Route: 048
  9. CLOZAPIN 25 MG [Concomitant]
     Indication: PRODUCT USED FOR UNKNOWN INDICATION
     Route: 048
  10. PK?MERZ 100 [Concomitant]
     Indication: PARKINSON^S DISEASE
     Route: 048
  11. TASMAR [Concomitant]
     Active Substance: TOLCAPONE
     Indication: PARKINSON^S DISEASE
     Route: 048
  12. PANTOPRAZOL 40 [Concomitant]
     Active Substance: PANTOPRAZOLE SODIUM
     Indication: PRODUCT USED FOR UNKNOWN INDICATION
     Route: 048

REACTIONS (4)
  - Nausea [Recovered/Resolved]
  - Injection site nodule [Not Recovered/Not Resolved]
  - Injection site necrosis [Recovering/Resolving]
  - Vomiting [Recovered/Resolved]

NARRATIVE: CASE EVENT DATE: 20121121
